FAERS Safety Report 14069274 (Version 1)
Quarter: 2017Q4

REPORT INFORMATION
  Report Type: Spontaneous
  Country: AU (occurrence: AU)
  Receive Date: 20171010
  Receipt Date: 20171010
  Transmission Date: 20180321
  Serious: Yes (Life-Threatening, Other)
  Sender: FDA-Public Use
  Company Number: AU-DSJP-DSU-2017-143273

PATIENT

DRUGS (2)
  1. SEVIKAR [Suspect]
     Active Substance: AMLODIPINE BESYLATE\OLMESARTAN MEDOXOMIL
     Indication: BLOOD PRESSURE INCREASED
     Dosage: 20/5 MG, QD
     Route: 048
     Dates: start: 20110312
  2. SEVIKAR [Suspect]
     Active Substance: AMLODIPINE BESYLATE\OLMESARTAN MEDOXOMIL
     Dosage: 20/5 MG, QD
     Route: 048
     Dates: end: 20161215

REACTIONS (6)
  - Weight decreased [Recovered/Resolved]
  - Malabsorption [Recovered/Resolved]
  - Laboratory test abnormal [Recovered/Resolved]
  - Intestinal villi atrophy [Recovered/Resolved]
  - Hypotension [Recovered/Resolved]
  - Diarrhoea [Recovered/Resolved]

NARRATIVE: CASE EVENT DATE: 20160727
